FAERS Safety Report 7782403-0 (Version None)
Quarter: 2011Q3

REPORT INFORMATION
  Report Type: 
  Country: None (occurrence: None)
  Receive Date: 20110927
  Receipt Date: 20110915
  Transmission Date: 20111222
  Serious: Yes (Hospitalization, Other)
  Sender: FDA-Public Use
  Company Number: IT-ELI_LILLY_AND_COMPANY-IT201107005954

PATIENT
  Sex: Male

DRUGS (7)
  1. ABILIFY [Concomitant]
     Indication: SCHIZOPHRENIA
     Dosage: 10 MG, UNK
  2. OLANZAPINE [Suspect]
     Dosage: 10 MG, EACH EVENING
     Dates: start: 20110316
  3. OLANZAPINE [Suspect]
     Dosage: 5 MG, EACH EVENING
  4. OLANZAPINE [Suspect]
     Indication: SCHIZOPHRENIA
     Dosage: 5 MG, EACH EVENING
     Dates: start: 20110201
  5. OLANZAPINE [Suspect]
     Dosage: 280 MG
     Dates: start: 20110628, end: 20110628
  6. ABILIFY [Concomitant]
     Dosage: 30 MG, UNK
  7. OLANZAPINE [Suspect]
     Dosage: 10 MG, EACH MORNING

REACTIONS (4)
  - PERSONALITY DISORDER [None]
  - INTENTIONAL OVERDOSE [None]
  - SOMNOLENCE [None]
  - PSYCHOTIC BEHAVIOUR [None]
